FAERS Safety Report 8417192-X (Version None)
Quarter: 2012Q2

REPORT INFORMATION
  Report Type: 
  Country: None (occurrence: None)
  Receive Date: 20120606
  Receipt Date: 20120531
  Transmission Date: 20120825
  Serious: Yes (Death, Hospitalization)
  Sender: FDA-Public Use
  Company Number: CH-ROCHE-1054133

PATIENT
  Age: 59 Year
  Sex: Male
  Weight: 71 kg

DRUGS (3)
  1. BENDAMUSTINE HYDROCHLORIDE [Suspect]
     Indication: CHRONIC LYMPHOCYTIC LEUKAEMIA
     Dosage: PER CYCLE
     Route: 042
     Dates: start: 20110330, end: 20110819
  2. MABTHERA [Suspect]
     Dosage: CYCLE 2-6
     Route: 042
     Dates: start: 20110329, end: 20110818
  3. MABTHERA [Suspect]
     Indication: CHRONIC LYMPHOCYTIC LEUKAEMIA
     Dosage: 1 CYCLE
     Route: 042

REACTIONS (2)
  - PERIPHERAL MOTOR NEUROPATHY [None]
  - PROGRESSIVE MULTIFOCAL LEUKOENCEPHALOPATHY [None]
